FAERS Safety Report 5498180-2 (Version None)
Quarter: 2007Q4

REPORT INFORMATION
  Report Type: 
  Country: None (occurrence: None)
  Receive Date: 20071025
  Receipt Date: 20070410
  Transmission Date: 20080405
  Serious: No
  Sender: FDA-Public Use
  Company Number: A0646592A

PATIENT
  Age: 84 Year
  Sex: Female

DRUGS (12)
  1. ADVAIR DISKUS 100/50 [Suspect]
     Dosage: 250MCG TWICE PER DAY
     Route: 055
     Dates: start: 20070326
  2. ALTACE [Concomitant]
  3. ASPIRIN [Concomitant]
  4. CLOPIDOGREL [Concomitant]
  5. UNKNOWN MEDICATION [Concomitant]
  6. LIPITOR [Concomitant]
  7. OMEPRAZOLE [Concomitant]
  8. TOPROL-XL [Concomitant]
  9. VITAMIN [Concomitant]
  10. FISH OIL [Concomitant]
  11. AMOXICILLIN [Concomitant]
  12. NITROQUICK [Concomitant]

REACTIONS (1)
  - DRUG INEFFECTIVE [None]
